FAERS Safety Report 8097570-1 (Version None)
Quarter: 2012Q1

REPORT INFORMATION
  Report Type: 
  Country: None (occurrence: None)
  Receive Date: 20120128
  Receipt Date: 20110713
  Transmission Date: 20120608
  Serious: No
  Sender: FDA-Public Use
  Company Number: US-ABBOTT-09P-163-0567340-00

PATIENT
  Sex: Male
  Weight: 100.79 kg

DRUGS (8)
  1. IMURAN [Concomitant]
     Indication: RHEUMATOID ARTHRITIS
     Dates: end: 20100101
  2. RESPIRATROL [Concomitant]
     Indication: DRY EYE
  3. UNKNOWN DIGESTIVE ENZYMES [Concomitant]
     Indication: PRODUCT USED FOR UNKNOWN INDICATION
  4. HERBAL SUPPLEMENTS [Concomitant]
     Indication: PRODUCT USED FOR UNKNOWN INDICATION
  5. HUMIRA [Suspect]
     Indication: RHEUMATOID ARTHRITIS
     Dates: start: 20060101, end: 20090101
  6. GINSENG [Concomitant]
     Indication: PRODUCT USED FOR UNKNOWN INDICATION
  7. MILK THISTLE SUPPLEMENT [Concomitant]
     Indication: LIVER DISORDER
  8. HUMIRA [Suspect]
     Route: 058
     Dates: start: 20090101

REACTIONS (13)
  - PAIN [None]
  - INFECTION [None]
  - DRUG INEFFECTIVE [None]
  - CHILLS [None]
  - INCORRECT STORAGE OF DRUG [None]
  - ASPARTATE AMINOTRANSFERASE INCREASED [None]
  - ALANINE AMINOTRANSFERASE INCREASED [None]
  - HEADACHE [None]
  - PYREXIA [None]
  - DRUG EFFECT DECREASED [None]
  - FATIGUE [None]
  - SERUM SICKNESS [None]
  - BREAKTHROUGH PAIN [None]
